FAERS Safety Report 26157662 (Version 1)
Quarter: 2025Q4

REPORT INFORMATION
  Report Type: Spontaneous
  Country: US (occurrence: None)
  Receive Date: 20251212
  Receipt Date: 20251212
  Transmission Date: 20260117
  Serious: Yes (Death)
  Sender: FDA-CTU
  Company Number: None

PATIENT
  Sex: Female

DRUGS (10)
  1. LENALIDOMIDE [Suspect]
     Active Substance: LENALIDOMIDE
     Indication: Plasma cell myeloma
     Dosage: FREQUENCY : DAILY;?FREQ: TAKE 1 CAPSULE (5 MG) BY MOUTH DAILY FOR 21 DAYS, THEN 7 DAYS OFF. SWALLOW WHOLE WITH A GLASS ?OF WATER; DO NOT OPEN, CRUSH, CHEW, BREAK, QR DISSOLVE.
     Route: 048
     Dates: start: 20250808
  2. ASPIRIN 81 TAB 81 MG EC [Concomitant]
  3. ATORVASTATIN [Concomitant]
     Active Substance: ATORVASTATIN
  4. CALCITONIN SPR 200/ACT [Concomitant]
  5. DEXAMETHASON TAB 0.75MG [Concomitant]
  6. LIDOCAINE DIS 5% PATCH [Concomitant]
  7. LOSARTAN POTASSIUM [Concomitant]
     Active Substance: LOSARTAN POTASSIUM
  8. METOPROL sue TAB 50MG ER [Concomitant]
  9. MULTIVITAMIN TAB ADLT 50+ [Concomitant]
  10. NAPROXEN [Concomitant]
     Active Substance: NAPROXEN

REACTIONS (1)
  - Death [None]
